FAERS Safety Report 24875731 (Version 3)
Quarter: 2025Q1

REPORT INFORMATION
  Report Type: Spontaneous
  Country: CN (occurrence: CN)
  Receive Date: 20250122
  Receipt Date: 20250320
  Transmission Date: 20250408
  Serious: Yes (Hospitalization)
  Sender: JIANGSU HENGRUI
  Company Number: CN-JIANGSU HENGRUI PHARMACEUTICALS CO., LTD.-H2025001200363

PATIENT
  Age: 34 Year

DRUGS (12)
  1. PACLITAXEL [Suspect]
     Active Substance: PACLITAXEL
     Indication: Breast cancer stage IV
  2. PACLITAXEL [Suspect]
     Active Substance: PACLITAXEL
  3. PACLITAXEL [Suspect]
     Active Substance: PACLITAXEL
  4. PACLITAXEL [Suspect]
     Active Substance: PACLITAXEL
  5. PACLITAXEL [Suspect]
     Active Substance: PACLITAXEL
  6. PACLITAXEL [Suspect]
     Active Substance: PACLITAXEL
  7. PACLITAXEL [Suspect]
     Active Substance: PACLITAXEL
  8. PACLITAXEL [Suspect]
     Active Substance: PACLITAXEL
  9. PACLITAXEL [Suspect]
     Active Substance: PACLITAXEL
  10. PACLITAXEL [Suspect]
     Active Substance: PACLITAXEL
  11. LEUCOGEN [Concomitant]
     Active Substance: LEUCOGEN
     Indication: Prophylaxis
  12. PALONOSETRON HYDROCHLORIDE [Concomitant]
     Active Substance: PALONOSETRON HYDROCHLORIDE
     Indication: Prophylaxis

REACTIONS (1)
  - Urinary tract infection [Recovering/Resolving]
